FAERS Safety Report 7905124-X (Version None)
Quarter: 2011Q4

REPORT INFORMATION
  Report Type: 
  Country: None (occurrence: None)
  Receive Date: 20111109
  Receipt Date: 20111102
  Transmission Date: 20120403
  Serious: Yes (Life-Threatening, Hospitalization)
  Sender: FDA-Public Use
  Company Number: PHHO2011AU06834

PATIENT
  Sex: Male
  Weight: 65 kg

DRUGS (8)
  1. TACROLIMUS [Suspect]
     Indication: LIVER TRANSPLANT
     Dosage: 1MG AM, 0.5MG PM
     Route: 048
     Dates: start: 20091007, end: 20110415
  2. TEMAZEPAM [Concomitant]
     Indication: SLEEP DISORDER THERAPY
     Dosage: 10 MG, UNK
     Dates: start: 20091022
  3. CIPROFLOXACIN [Suspect]
     Dosage: UNK
     Dates: start: 20110329
  4. PANTOPRAZOLE [Concomitant]
     Indication: PROPHYLAXIS
     Dosage: 40 MG, QD
     Dates: start: 20091007
  5. EVEROLIMUS [Suspect]
     Indication: LIVER TRANSPLANT
     Dosage: 1 MG, BID
     Route: 048
     Dates: start: 20091109, end: 20110415
  6. CALCIUM CARBONATE [Concomitant]
     Indication: MINERAL SUPPLEMENTATION
     Dosage: 1 TSP, QD
     Dates: start: 20091019
  7. COLECALCIFEROL [Concomitant]
     Indication: VITAMIN SUPPLEMENTATION
     Dosage: 25 UG, QD
     Dates: start: 20091019
  8. FLUCONAZOLE [Suspect]
     Dosage: UNK
     Dates: start: 20110329

REACTIONS (2)
  - RENAL FAILURE [None]
  - TENDONITIS [None]
